FAERS Safety Report 9409232 (Version 1)
Quarter: 2013Q3

REPORT INFORMATION
  Report Type: Spontaneous
  Country: US (occurrence: US)
  Receive Date: 20130719
  Receipt Date: 20130719
  Transmission Date: 20140515
  Serious: Yes (Hospitalization, Other)
  Sender: FDA-Public Use
  Company Number: US-SANOFI-AVENTIS-2013SA071990

PATIENT
  Age: 67 Year
  Sex: Male

DRUGS (5)
  1. AMARYL [Suspect]
     Indication: TYPE 2 DIABETES MELLITUS
     Route: 048
  2. LANTUS SOLOSTAR [Suspect]
     Indication: TYPE 2 DIABETES MELLITUS
     Dosage: DOSE:40 UNIT(S)
     Route: 058
     Dates: start: 201306
  3. SOLOSTAR [Suspect]
     Indication: TYPE 2 DIABETES MELLITUS
     Dates: start: 201306
  4. SYNTHROID [Concomitant]
     Route: 065
  5. JANUMET [Concomitant]
     Route: 065

REACTIONS (8)
  - Arthropathy [Unknown]
  - Thyroid disorder [Unknown]
  - Staphylococcal infection [Unknown]
  - Lipids increased [Unknown]
  - Sluggishness [Unknown]
  - Abdominal discomfort [Unknown]
  - Blood glucose increased [Not Recovered/Not Resolved]
  - Glycosylated haemoglobin increased [Not Recovered/Not Resolved]
